FAERS Safety Report 6331901-5 (Version None)
Quarter: 2009Q3

REPORT INFORMATION
  Report Type: 
  Country: None (occurrence: None)
  Receive Date: 20090826
  Receipt Date: 20090818
  Transmission Date: 20100115
  Serious: Yes (Hospitalization)
  Sender: FDA-Public Use
  Company Number: GXKR2009US09342

PATIENT
  Age: 56 Year
  Sex: Male

DRUGS (5)
  1. PRAVASTATIN [Suspect]
     Dosage: 80 MG/DAY
  2. CLOPIDOGREL [Suspect]
     Dosage: 75 MG, QD
  3. TRUVADA [Concomitant]
     Indication: ANTIRETROVIRAL THERAPY
     Dosage: 1 DF, QD
  4. ATAZANAVIR SULFATE [Concomitant]
  5. RITONAVIR [Concomitant]

REACTIONS (5)
  - DRUG INTERACTION [None]
  - ERYTHEMA [None]
  - GAIT DISTURBANCE [None]
  - RENAL FAILURE ACUTE [None]
  - RHABDOMYOLYSIS [None]
